FAERS Safety Report 23872080 (Version 1)
Quarter: 2024Q2

REPORT INFORMATION
  Report Type: Spontaneous
  Country: US (occurrence: US)
  Receive Date: 20240520
  Receipt Date: 20240520
  Transmission Date: 20240716
  Serious: Yes (Hospitalization, Other)
  Sender: FDA-Public Use
  Company Number: US-GLAXOSMITHKLINE-US2024GSK060426

PATIENT

DRUGS (1)
  1. LAMOTRIGINE [Suspect]
     Active Substance: LAMOTRIGINE
     Indication: Product used for unknown indication
     Dosage: UNK

REACTIONS (9)
  - Drug-induced liver injury [Unknown]
  - Liver disorder [Unknown]
  - Illness [Unknown]
  - Multiple organ dysfunction syndrome [Unknown]
  - Vomiting [Unknown]
  - Hypertransaminasaemia [Unknown]
  - Hepatic fibrosis [Unknown]
  - Condition aggravated [Unknown]
  - Spontaneous bacterial peritonitis [Unknown]

NARRATIVE: CASE EVENT DATE: 20220101
